FAERS Safety Report 18204268 (Version 1)
Quarter: 2020Q3

REPORT INFORMATION
  Report Type: Spontaneous
  Country: FR (occurrence: FR)
  Receive Date: 20200827
  Receipt Date: 20200827
  Transmission Date: 20201103
  Serious: Yes (Death, Hospitalization)
  Sender: FDA-Public Use
  Company Number: FR-MYLANLABS-2020M1073373

PATIENT
  Age: 75 Year
  Sex: Male

DRUGS (7)
  1. KARDEGIC [Interacting]
     Active Substance: ASPIRIN DL-LYSINE
     Indication: CARDIOVASCULAR EVENT PROPHYLAXIS
     Dosage: 1 DOSAGE FORM, QD
     Route: 048
     Dates: start: 201701, end: 20200721
  2. ATORVASTATINE                      /01326101/ [Concomitant]
     Active Substance: ATORVASTATIN
     Dosage: 20 MILLIGRAM, QW
     Route: 048
  3. RIVOTRIL [Concomitant]
     Active Substance: CLONAZEPAM
     Indication: NARCOLEPSY
     Dosage: 12 GTT DROPS, QD
     Route: 048
  4. PEGASYS PFS [Concomitant]
     Indication: MYELOFIBROSIS
     Dosage: 1 DOSAGE FORM, BIWEEKLY
     Route: 058
     Dates: start: 201701
  5. VENLAFAXINE [Suspect]
     Active Substance: VENLAFAXINE HYDROCHLORIDE
     Indication: NARCOLEPSY
     Dosage: 75 MILLIGRAM, QD
     Route: 048
  6. ARANESP [Concomitant]
     Active Substance: DARBEPOETIN ALFA
     Indication: MYELOFIBROSIS
     Dosage: 300 MICROGRAM, QW
     Route: 058
  7. LERCAPRESS                         /07931001/ [Concomitant]
     Active Substance: ENALAPRIL MALEATE\LERCANIDIPINE HYDROCHLORIDE
     Indication: HYPERTENSION
     Dosage: 1 DOSAGE FORM, QD
     Route: 048

REACTIONS (3)
  - Cerebral haematoma [Fatal]
  - Drug interaction [Unknown]
  - Subdural haematoma [Fatal]

NARRATIVE: CASE EVENT DATE: 20200721
